FAERS Safety Report 8879075 (Version 1)
Quarter: 2012Q4

REPORT INFORMATION
  Report Type: Spontaneous
  Country: US (occurrence: None)
  Receive Date: 20121031
  Receipt Date: 20121031
  Transmission Date: 20130627
  Serious: No
  Sender: FDA-Public Use
  Company Number: None

PATIENT
  Age: 57 Year
  Sex: Male
  Weight: 142.1 kg

DRUGS (1)
  1. ASPIRIN [Suspect]
     Indication: PROPHYLAXIS
     Route: 048
     Dates: start: 20100310

REACTIONS (3)
  - Rectal haemorrhage [None]
  - Dyspnoea [None]
  - Blood count abnormal [None]
